FAERS Safety Report 22960549 (Version 3)
Quarter: 2025Q4

REPORT INFORMATION
  Report Type: Spontaneous
  Country: EU (occurrence: EU)
  Receive Date: 20230920
  Receipt Date: 20251203
  Transmission Date: 20260118
  Serious: Yes (Hospitalization, Other)
  Sender: MYLAN
  Company Number: EU-Zentiva-2023-ZT-018052

PATIENT
  Age: 69 Year
  Sex: Female

DRUGS (16)
  1. IMATINIB [Suspect]
     Active Substance: IMATINIB
     Indication: Chronic myeloid leukaemia
     Dosage: 400 MILLIGRAM, QD
     Dates: start: 202104
  2. IMATINIB [Suspect]
     Active Substance: IMATINIB
     Dosage: 400 MILLIGRAM, QD
     Route: 065
     Dates: start: 202104
  3. IMATINIB [Suspect]
     Active Substance: IMATINIB
     Dosage: 400 MILLIGRAM, QD
     Route: 065
     Dates: start: 202104
  4. IMATINIB [Suspect]
     Active Substance: IMATINIB
     Dosage: 400 MILLIGRAM, QD
     Dates: start: 202104
  5. DASATINIB [Suspect]
     Active Substance: DASATINIB
     Indication: Chronic myeloid leukaemia
     Dosage: 60 MILLIGRAM, QD
     Route: 065
     Dates: start: 202108, end: 202203
  6. DASATINIB [Suspect]
     Active Substance: DASATINIB
     Dosage: 60 MILLIGRAM, QD
     Dates: start: 202108, end: 202203
  7. DASATINIB [Suspect]
     Active Substance: DASATINIB
     Dosage: 60 MILLIGRAM, QD
     Dates: start: 202108, end: 202203
  8. DASATINIB [Suspect]
     Active Substance: DASATINIB
     Dosage: 60 MILLIGRAM, QD
     Route: 065
     Dates: start: 202108, end: 202203
  9. DASATINIB [Suspect]
     Active Substance: DASATINIB
     Dosage: 40 MILLIGRAM, QD
     Dates: start: 202202, end: 202203
  10. DASATINIB [Suspect]
     Active Substance: DASATINIB
     Dosage: 40 MILLIGRAM, QD
     Dates: start: 202202, end: 202203
  11. DASATINIB [Suspect]
     Active Substance: DASATINIB
     Dosage: 40 MILLIGRAM, QD
     Route: 065
     Dates: start: 202202, end: 202203
  12. DASATINIB [Suspect]
     Active Substance: DASATINIB
     Dosage: 40 MILLIGRAM, QD
     Route: 065
     Dates: start: 202202, end: 202203
  13. DASATINIB [Suspect]
     Active Substance: DASATINIB
     Dosage: 20 MILLIGRAM, QD
     Route: 065
     Dates: start: 202205
  14. DASATINIB [Suspect]
     Active Substance: DASATINIB
     Dosage: 20 MILLIGRAM, QD
     Dates: start: 202205
  15. DASATINIB [Suspect]
     Active Substance: DASATINIB
     Dosage: 20 MILLIGRAM, QD
     Dates: start: 202205
  16. DASATINIB [Suspect]
     Active Substance: DASATINIB
     Dosage: 20 MILLIGRAM, QD
     Route: 065
     Dates: start: 202205

REACTIONS (12)
  - Hospitalisation [Unknown]
  - Gastrointestinal toxicity [Recovered/Resolved]
  - Thrombocytopenia [Recovered/Resolved]
  - Neutropenia [Unknown]
  - Haematotoxicity [Recovered/Resolved]
  - Pleural effusion [Unknown]
  - Rash [Recovered/Resolved]
  - Dyspnoea [Recovered/Resolved]
  - Nausea [Recovered/Resolved]
  - Dyspepsia [Recovered/Resolved]
  - Anaemia [Recovered/Resolved]
  - Adverse drug reaction [Unknown]

NARRATIVE: CASE EVENT DATE: 20220201
